FAERS Safety Report 13048150 (Version 1)
Quarter: 2016Q4

REPORT INFORMATION
  Report Type: Spontaneous
  Country: IN (occurrence: IN)
  Receive Date: 20161220
  Receipt Date: 20161220
  Transmission Date: 20170207
  Serious: Yes (Other)
  Sender: FDA-Public Use
  Company Number: IN-UPSHER-SMITH LABORATORIES, INC.-16002499

PATIENT
  Age: 55 Year
  Sex: Female

DRUGS (1)
  1. CHLORPROMAZINE HYDROCHLORIDE. [Suspect]
     Active Substance: CHLORPROMAZINE HYDROCHLORIDE
     Indication: SCHIZOPHRENIA
     Dosage: 600 MG, QD
     Route: 048

REACTIONS (3)
  - Cataract [Not Recovered/Not Resolved]
  - Visual acuity reduced [Unknown]
  - Corneal pigmentation [Not Recovered/Not Resolved]
